FAERS Safety Report 7421565-1 (Version None)
Quarter: 2011Q2

REPORT INFORMATION
  Report Type: 
  Country: None (occurrence: None)
  Receive Date: 20110418
  Receipt Date: 20110407
  Transmission Date: 20111010
  Serious: Yes (Other)
  Sender: FDA-Public Use
  Company Number: SE-BAXTER-2011BH010936

PATIENT
  Sex: Male

DRUGS (2)
  1. PROPOFOL [Concomitant]
     Indication: GENERAL ANAESTHESIA
     Route: 042
     Dates: start: 20110329, end: 20110329
  2. SUPRANE [Suspect]
     Indication: GENERAL ANAESTHESIA
     Route: 055
     Dates: start: 20110329, end: 20110329

REACTIONS (4)
  - TACHYCARDIA [None]
  - DEVICE MALFUNCTION [None]
  - AIRWAY PEAK PRESSURE INCREASED [None]
  - DRUG INEFFECTIVE [None]
